FAERS Safety Report 7594867-6 (Version None)
Quarter: 2011Q3

REPORT INFORMATION
  Report Type: 
  Country: None (occurrence: None)
  Receive Date: 20110707
  Receipt Date: 20110630
  Transmission Date: 20111222
  Serious: Yes (Life-Threatening)
  Sender: FDA-Public Use
  Company Number: NL-AMGEN-NLDSP2011033954

PATIENT
  Age: 44 Year
  Sex: Male

DRUGS (10)
  1. ASCAL                              /00002702/ [Concomitant]
     Dosage: UNK
  2. PERSANTIN [Concomitant]
     Dosage: UNK
  3. MTX                                /00113801/ [Concomitant]
     Dosage: UNK
  4. LEVEMIR [Concomitant]
     Dosage: UNK
  5. HYDROCHLOROTHIAZIDE [Concomitant]
     Dosage: UNK
  6. ACTRAPID                           /00030501/ [Concomitant]
     Dosage: UNK UNK, UNK
  7. FOLIC ACID [Concomitant]
     Dosage: UNK
  8. ENALAPRIL MALEATE [Concomitant]
     Dosage: UNK
  9. LOSEC                              /00661201/ [Concomitant]
     Dosage: UNK
  10. ENBREL [Suspect]
     Indication: PSORIASIS
     Dosage: 50 MG, 2X/WEEK

REACTIONS (2)
  - SKIN DISORDER [None]
  - CEREBROVASCULAR ACCIDENT [None]
